FAERS Safety Report 6342563-5 (Version None)
Quarter: 2009Q3

REPORT INFORMATION
  Report Type: 
  Country: None (occurrence: None)
  Receive Date: 20090908
  Receipt Date: 20051114
  Transmission Date: 20100115
  Serious: No
  Sender: FDA-Public Use
  Company Number: JP-ROCHE-425991

PATIENT
  Sex: Male
  Weight: 3.4 kg

DRUGS (3)
  1. OSELTAMIVIR [Suspect]
     Dates: start: 20050228, end: 20050301
  2. HERBAL EXTRACTS NOS [Concomitant]
     Dosage: DOSAGE REGIMEN: 7.5GRAMS. REPORTED AS: SHOUSEI RYUUTO (HERBAL MEDICINE). INDICATION REPORTED AS 'CO+
     Dates: start: 20050228, end: 20050307
  3. CALONAL [Concomitant]
     Dosage: DOSAGE REGIMEN: 1200MG
     Dates: start: 20050228, end: 20050307

REACTIONS (2)
  - DRUG EXPOSURE DURING PREGNANCY [None]
  - NORMAL NEWBORN [None]
